FAERS Safety Report 10072956 (Version 1)
Quarter: 2014Q2

REPORT INFORMATION
  Report Type: Spontaneous
  Country: US (occurrence: None)
  Receive Date: 20140411
  Receipt Date: 20140411
  Transmission Date: 20141212
  Serious: Yes (Other)
  Sender: FDA-Public Use
  Company Number: None

PATIENT
  Age: 34 Year
  Sex: Female

DRUGS (2)
  1. MIFIPROSTOL, 400MCG [Concomitant]
  2. MIFEPREX [Suspect]
     Indication: ABORTION
     Dosage: 200MCG, 1 PILL, ONCE, ORAL
     Route: 048
     Dates: start: 20140325

REACTIONS (2)
  - Drug ineffective [None]
  - Maternal exposure during pregnancy [None]
